FAERS Safety Report 20740642 (Version 1)
Quarter: 2022Q2

REPORT INFORMATION
  Report Type: Spontaneous
  Country: JP (occurrence: JP)
  Receive Date: 20220422
  Receipt Date: 20220422
  Transmission Date: 20220721
  Serious: Yes (Death, Other)
  Sender: FDA-Public Use
  Company Number: JP-DSJP-DSJ-2022-114252AA

PATIENT
  Age: 7 Decade
  Sex: Female

DRUGS (2)
  1. ENHERTU [Suspect]
     Active Substance: FAM-TRASTUZUMAB DERUXTECAN-NXKI
     Indication: Gastric cancer
     Dosage: UNK
     Route: 065
  2. UNSPECIFIED INGREDIENT [Suspect]
     Active Substance: UNSPECIFIED INGREDIENT
     Dosage: UNK
     Route: 065

REACTIONS (2)
  - Death [Fatal]
  - Interstitial lung disease [Unknown]
